FAERS Safety Report 14046895 (Version 2)
Quarter: 2017Q4

REPORT INFORMATION
  Report Type: Report from Study
  Country: GB (occurrence: GB)
  Receive Date: 20171005
  Receipt Date: 20171017
  Transmission Date: 20180321
  Serious: No
  Sender: FDA-Public Use
  Company Number: PHHO2017GB013624

PATIENT
  Age: 40 Year
  Sex: Male
  Weight: 115.3 kg

DRUGS (5)
  1. HYDROCORTISONE. [Concomitant]
     Active Substance: HYDROCORTISONE
     Indication: TINEA PEDIS
     Dosage: 15 G, TID
     Route: 061
     Dates: start: 20170713, end: 20170724
  2. LAMISIL [Concomitant]
     Active Substance: TERBINAFINE HYDROCHLORIDE
     Indication: TINEA PEDIS
     Dosage: BID
     Route: 061
     Dates: start: 20170622, end: 20170706
  3. IBUPROFEN. [Concomitant]
     Active Substance: IBUPROFEN
     Indication: PAIN
     Dosage: 400 MG, PRN
     Route: 048
     Dates: start: 20170901
  4. AIN457 [Suspect]
     Active Substance: SECUKINUMAB
     Indication: PSORIASIS
     Dosage: 300 MG, (IN 2 ML PFS)
     Route: 058
     Dates: start: 20170330
  5. POTASSIUM PERMANGANATE [Concomitant]
     Active Substance: POTASSIUM PERMANGANATE
     Indication: TINEA PEDIS
     Dosage: 400 MG, QD
     Route: 061
     Dates: start: 20170706, end: 20170713

REACTIONS (1)
  - Dyshidrotic eczema [Not Recovered/Not Resolved]

NARRATIVE: CASE EVENT DATE: 20170904
